FAERS Safety Report 24329353 (Version 1)
Quarter: 2024Q3

REPORT INFORMATION
  Report Type: Spontaneous
  Country: US (occurrence: US)
  Receive Date: 20240917
  Receipt Date: 20240917
  Transmission Date: 20241017
  Serious: No
  Sender: INCYTE
  Company Number: US-INCYTE CORPORATION-2024IN009456

PATIENT

DRUGS (1)
  1. OPZELURA [Suspect]
     Active Substance: RUXOLITINIB PHOSPHATE
     Dosage: 1.5 PERCENT, 60 GM, BID (APPLY A THIN LAYER TO AFFECTED AREA(S) ON UPPER BACK \T\ BILATERAL SHOULDER
     Route: 061
     Dates: start: 20240501

REACTIONS (2)
  - Fall [Unknown]
  - Arthralgia [Unknown]
